FAERS Safety Report 21219282 (Version 7)
Quarter: 2023Q1

REPORT INFORMATION
  Report Type: Report from Study
  Country: US (occurrence: US)
  Receive Date: 20220817
  Receipt Date: 20230327
  Transmission Date: 20230418
  Serious: Yes (Other)
  Sender: FDA-Public Use
  Company Number: US-ABBVIE-22K-163-4451108-00

PATIENT
  Age: 75 Year
  Sex: Female

DRUGS (2)
  1. SKYRIZI [Suspect]
     Active Substance: RISANKIZUMAB-RZAA
     Indication: Psoriatic arthropathy
     Route: 058
     Dates: start: 20220311, end: 202210
  2. VOLTAREN [Concomitant]
     Active Substance: DICLOFENAC SODIUM
     Indication: Product used for unknown indication
     Route: 065

REACTIONS (11)
  - Pulmonary fibrosis [Unknown]
  - Hepatic enzyme increased [Not Recovered/Not Resolved]
  - Hepatic cirrhosis [Not Recovered/Not Resolved]
  - Heart rate irregular [Recovered/Resolved]
  - Infection [Recovering/Resolving]
  - Influenza [Recovering/Resolving]
  - Pneumonia [Recovering/Resolving]
  - Therapeutic product effect decreased [Not Recovered/Not Resolved]
  - Psoriasis [Not Recovered/Not Resolved]
  - Blood potassium decreased [Unknown]
  - COVID-19 [Recovered/Resolved]

NARRATIVE: CASE EVENT DATE: 20220621
